FAERS Safety Report 10082300 (Version 1)
Quarter: 2014Q2

REPORT INFORMATION
  Report Type: Spontaneous
  Country: GB (occurrence: GB)
  Receive Date: 20140416
  Receipt Date: 20140416
  Transmission Date: 20141212
  Serious: Yes (Other)
  Sender: FDA-Public Use
  Company Number: GB-TEVA-473932ISR

PATIENT
  Age: 78 Year
  Sex: Male

DRUGS (5)
  1. TAMSULOSIN [Suspect]
     Indication: URINARY RETENTION
     Dosage: 400 MICROGRAM DAILY; MODIFIED-RELEASE CAPSULE, HARD
     Route: 048
     Dates: start: 20140303
  2. CLEXANE [Concomitant]
     Indication: PROPHYLAXIS
     Dosage: 40MG/0.4ML
     Route: 058
  3. DOCUSATE [Concomitant]
     Route: 048
  4. LAXIDO [Concomitant]
     Dosage: ORAL POWDER
     Route: 048
  5. UNSPECIFIED MEDICATION [Concomitant]
     Dosage: PARACE

REACTIONS (2)
  - Pruritus [Unknown]
  - Lymphoedema [Unknown]
